FAERS Safety Report 15778406 (Version 1)
Quarter: 2018Q4

REPORT INFORMATION
  Report Type: Spontaneous
  Country: JP (occurrence: JP)
  Receive Date: 20181231
  Receipt Date: 20181231
  Transmission Date: 20190205
  Serious: Yes (Hospitalization, Other)
  Sender: FDA-Public Use
  Company Number: JP-009507513-1808JPN001393J

PATIENT
  Age: 62 Year
  Sex: Female
  Weight: 45 kg

DRUGS (10)
  1. KEYTRUDA [Suspect]
     Active Substance: PEMBROLIZUMAB
     Indication: NON-SMALL CELL LUNG CANCER
     Dosage: 200 MILLIGRAM, Q3W
     Route: 041
     Dates: start: 20180502, end: 20180725
  2. BAKTAR [Suspect]
     Active Substance: SULFAMETHOXAZOLE\TRIMETHOPRIM
     Indication: PROPHYLAXIS
     Dosage: 1 DOSAGE FORM, QD
     Route: 048
     Dates: start: 20180822, end: 20180919
  3. LOBU [Concomitant]
     Active Substance: LOBUCAVIR
     Dosage: 60 MILLIGRAM, TID
     Route: 048
  4. CORTROSYN [Suspect]
     Active Substance: COSYNTROPIN
     Indication: ACTH STIMULATION TEST
     Dosage: 0.25 MILLIGRAM, QD
     Route: 042
     Dates: start: 20180807, end: 20180807
  5. MAGMITT [Concomitant]
     Active Substance: MAGNESIUM OXIDE
     Dosage: 500 MILLIGRAM, TID
     Route: 048
  6. SELBEX [Concomitant]
     Active Substance: TEPRENONE
     Dosage: 50 MILLIGRAM, TID
     Route: 048
  7. DEPAS [Concomitant]
     Active Substance: ETIZOLAM
     Dosage: 0.5 MILLIGRAM, QD
     Route: 048
  8. E KEPPRA [Suspect]
     Active Substance: LEVETIRACETAM
     Indication: DEPRESSED LEVEL OF CONSCIOUSNESS
     Dosage: 500 MILLIGRAM, BID
     Route: 048
     Dates: start: 20180818, end: 20180919
  9. TRYPTANOL [Concomitant]
     Active Substance: AMITRIPTYLINE
     Dosage: 10 MILLIGRAM, BID
     Route: 048
  10. RESPLEN [Concomitant]
     Active Substance: EPRAZINONE
     Dosage: 20 MILLIGRAM, TID
     Route: 048

REACTIONS (7)
  - Adrenal insufficiency [Recovering/Resolving]
  - Encephalitis [Recovered/Resolved]
  - Epilepsy [Recovered/Resolved]
  - Hyperthyroidism [Recovering/Resolving]
  - Stevens-Johnson syndrome [Not Recovered/Not Resolved]
  - Malignant neoplasm progression [Unknown]
  - Stevens-Johnson syndrome [Unknown]

NARRATIVE: CASE EVENT DATE: 20180801
